FAERS Safety Report 6190158-9 (Version None)
Quarter: 2009Q2

REPORT INFORMATION
  Report Type: 
  Country: None (occurrence: None)
  Receive Date: 20090427
  Receipt Date: 20081030
  Transmission Date: 20091009
  Serious: Yes (Hospitalization)
  Sender: FDA-Public Use
  Company Number: WAES 0810USA05381

PATIENT
  Age: 3 Year
  Sex: Male

DRUGS (8)
  1. SINGULAIR [Suspect]
     Indication: ASTHMA
     Dosage: 4 MG/DAILY/PO
     Route: 048
     Dates: start: 20070101, end: 20080101
  2. SINGULAIR [Suspect]
     Indication: RHINITIS ALLERGIC
     Dosage: 4 MG/DAILY/PO
     Route: 048
     Dates: start: 20070101, end: 20080101
  3. SINGULAIR [Suspect]
     Indication: ASTHMA
     Dosage: 4 MG/DAILY/PO
     Route: 048
     Dates: start: 20080601, end: 20081023
  4. SINGULAIR [Suspect]
     Indication: RHINITIS ALLERGIC
     Dosage: 4 MG/DAILY/PO
     Route: 048
     Dates: start: 20080601, end: 20081023
  5. QVAR 40 [Concomitant]
  6. RHINOCORT (BECLOMETHASONE DIPROP [Concomitant]
  7. TRIAMINIC SRT [Concomitant]
  8. ZYRTEC [Concomitant]

REACTIONS (2)
  - ABDOMINAL PAIN [None]
  - ANXIETY [None]
